FAERS Safety Report 8891138 (Version 1)
Quarter: 2012Q4

REPORT INFORMATION
  Report Type: Report from Study
  Country: US (occurrence: US)
  Receive Date: 20121107
  Receipt Date: 20121107
  Transmission Date: 20130627
  Serious: Yes (Other)
  Sender: FDA-Public Use
  Company Number: US-PFIZER INC-2011304840

PATIENT
  Age: 55 Year
  Sex: Female
  Weight: 58.5 kg

DRUGS (3)
  1. CHANTIX [Suspect]
     Indication: SMOKING CESSATION THERAPY
     Dosage: UNK
     Dates: start: 2007
  2. PREDNISONE [Suspect]
     Indication: BRONCHITIS
     Dosage: UNK
     Dates: start: 2007
  3. PERFOROMIST [Concomitant]
     Indication: LUNG DISEASE
     Dosage: UNK

REACTIONS (3)
  - Bronchitis [Unknown]
  - Insomnia [Recovered/Resolved]
  - Nervousness [Unknown]
